FAERS Safety Report 16518415 (Version 7)
Quarter: 2023Q1

REPORT INFORMATION
  Report Type: Spontaneous
  Country: US (occurrence: US)
  Receive Date: 20190702
  Receipt Date: 20230118
  Transmission Date: 20230418
  Serious: No
  Sender: FDA-Public Use
  Company Number: US-PFIZER INC-2019281421

PATIENT
  Age: 50 Year
  Sex: Female

DRUGS (2)
  1. XELJANZ XR [Suspect]
     Active Substance: TOFACITINIB CITRATE
     Indication: Rheumatoid arthritis
     Dosage: 11 MG, 1X/DAY
     Route: 048
     Dates: start: 20181215, end: 201812
  2. XELJANZ XR [Suspect]
     Active Substance: TOFACITINIB CITRATE
     Dosage: 11 MG, DAILY
     Route: 048
     Dates: start: 20181231

REACTIONS (9)
  - Rhinorrhoea [Recovered/Resolved]
  - Nasopharyngitis [Recovered/Resolved]
  - Cough [Unknown]
  - Pain [Unknown]
  - Fatigue [Unknown]
  - Feeling abnormal [Unknown]
  - Depression [Unknown]
  - Affective disorder [Unknown]
  - Headache [Unknown]
